FAERS Safety Report 20387553 (Version 1)
Quarter: 2022Q1

REPORT INFORMATION
  Report Type: Spontaneous
  Country: US (occurrence: US)
  Receive Date: 20220127
  Receipt Date: 20220127
  Transmission Date: 20220423
  Serious: No
  Sender: FDA-Public Use
  Company Number: US-ALLERGAN-2114548US

PATIENT
  Sex: Female

DRUGS (6)
  1. BOTOX [Suspect]
     Active Substance: ONABOTULINUMTOXINA
     Indication: Hyperhidrosis
     Dosage: 100 UNITS, SINGLE
     Dates: start: 20200612, end: 20200612
  2. BOTOX [Suspect]
     Active Substance: ONABOTULINUMTOXINA
     Dosage: 100 UNITS, SINGLE
     Dates: start: 20200122, end: 20200122
  3. VITAMIN C [Concomitant]
     Active Substance: ASCORBIC ACID
  4. ZINC [Concomitant]
     Active Substance: ZINC
  5. VITAMIN D [Concomitant]
     Active Substance: VITAMIN D NOS
  6. Unspecified topical creams [Concomitant]
     Indication: Skin disorder
     Route: 061

REACTIONS (4)
  - Breath odour [Unknown]
  - Noninfective gingivitis [Unknown]
  - Dry mouth [Not Recovered/Not Resolved]
  - Hypersensitivity [Unknown]
